FAERS Safety Report 18176349 (Version 1)
Quarter: 2020Q3

REPORT INFORMATION
  Report Type: Spontaneous
  Country: BE (occurrence: BE)
  Receive Date: 20200820
  Receipt Date: 20200820
  Transmission Date: 20201103
  Serious: Yes (Other)
  Sender: FDA-Public Use
  Company Number: BE-MYLANLABS-2020M1072257

PATIENT
  Age: 35 Year
  Sex: Male

DRUGS (11)
  1. AMPHOTERICIN B. [Concomitant]
     Active Substance: AMPHOTERICIN B
     Indication: FUNGAL INFECTION
  2. ITRACONAZOLE. [Concomitant]
     Active Substance: ITRACONAZOLE
     Indication: FUNGAL INFECTION
  3. POLYHEXAMETHYLENE BIGUANIDE HYDROCHLORIDE [Concomitant]
     Active Substance: POLIHEXANIDE HYDROCHLORIDE
     Indication: ACANTHAMOEBA KERATITIS
     Dosage: SIX TIMES A DAY
     Route: 065
  4. SOLU?MEDROL [Suspect]
     Active Substance: METHYLPREDNISOLONE SODIUM SUCCINATE
     Indication: ACANTHAMOEBA KERATITIS
     Dosage: 1 GRAM
     Route: 042
  5. AMPHOTERICIN B. [Concomitant]
     Active Substance: AMPHOTERICIN B
     Indication: EYE INFECTION FUNGAL
     Dosage: SIX TIMES A DAY
     Route: 065
  6. IBUPROFEN. [Suspect]
     Active Substance: IBUPROFEN
     Indication: ACANTHAMOEBA KERATITIS
     Dosage: 600 MILLIGRAM, TID
     Route: 048
  7. CHLORHEXIDINE [Concomitant]
     Active Substance: CHLORHEXIDINE
     Indication: ACANTHAMOEBA KERATITIS
     Dosage: SIX TIMES A DAY
     Route: 065
  8. ITRACONAZOLE. [Concomitant]
     Active Substance: ITRACONAZOLE
     Indication: EYE INFECTION FUNGAL
     Dosage: 100 MILLIGRAM
     Route: 048
  9. DESOMEDINE [Concomitant]
     Active Substance: HEXAMIDINE DIISETHIONATE
     Indication: ACANTHAMOEBA KERATITIS
     Route: 065
  10. NEPAFENAC [Suspect]
     Active Substance: NEPAFENAC
     Indication: ACANTHAMOEBA KERATITIS
     Route: 061
  11. METHYLPREDNISOLONE. [Suspect]
     Active Substance: METHYLPREDNISOLONE
     Indication: ACANTHAMOEBA KERATITIS
     Route: 048

REACTIONS (1)
  - Drug ineffective [Unknown]
